FAERS Safety Report 20247805 (Version 2)
Quarter: 2025Q3

REPORT INFORMATION
  Report Type: Spontaneous
  Country: US (occurrence: US)
  Receive Date: 20211229
  Receipt Date: 20250709
  Transmission Date: 20251020
  Serious: No
  Sender: SANOFI AVENTIS
  Company Number: US-SA-SAC20211227001209

PATIENT
  Age: 61 Year
  Sex: Female

DRUGS (1)
  1. NEXVIAZYME [Suspect]
     Active Substance: AVALGLUCOSIDASE ALFA-NGPT

REACTIONS (2)
  - Drug specific antibody [Unknown]
  - Hypersensitivity [Unknown]
